FAERS Safety Report 25390174 (Version 1)
Quarter: 2025Q2

REPORT INFORMATION
  Report Type: Spontaneous
  Country: CA (occurrence: CA)
  Receive Date: 20250603
  Receipt Date: 20250603
  Transmission Date: 20250717
  Serious: Yes (Other)
  Sender: PFIZER
  Company Number: CA-PFIZER INC-202500020437

PATIENT
  Age: 25 Year
  Sex: Female

DRUGS (2)
  1. ABRILADA [Suspect]
     Active Substance: ADALIMUMAB-AFZB
     Indication: Ankylosing spondylitis
     Route: 058
     Dates: start: 20241014
  2. ABRILADA [Suspect]
     Active Substance: ADALIMUMAB-AFZB
     Indication: Crohn^s disease
     Route: 058
     Dates: start: 20250507

REACTIONS (7)
  - Rectal haemorrhage [Unknown]
  - Rectal ulcer [Unknown]
  - Ileal ulcer [Unknown]
  - Anaemia [Unknown]
  - Pain [Unknown]
  - Nasopharyngitis [Unknown]
  - Off label use [Unknown]
